FAERS Safety Report 7464255-1 (Version None)
Quarter: 2011Q2

REPORT INFORMATION
  Report Type: 
  Country: None (occurrence: None)
  Receive Date: 20110508
  Receipt Date: 20110425
  Transmission Date: 20111010
  Serious: No
  Sender: FDA-Public Use
  Company Number: US-ROXANE LABORATORIES, INC.-2011-RO-00575RO

PATIENT
  Sex: Female

DRUGS (8)
  1. PLAVIX [Concomitant]
  2. CARVEDILOL [Concomitant]
  3. DOCUSATE SODIUM [Concomitant]
  4. CALCIUM ACETATE [Suspect]
     Indication: BLOOD PHOSPHORUS INCREASED
     Dosage: 6003 MG
     Route: 048
  5. ASPIRIN [Concomitant]
  6. FIBER LAX [Concomitant]
  7. MULTI-VITAMIN [Concomitant]
  8. BIO D VITAMIN [Concomitant]

REACTIONS (1)
  - CONSTIPATION [None]
